FAERS Safety Report 20451134 (Version 2)
Quarter: 2022Q2

REPORT INFORMATION
  Report Type: Report from Study
  Country: CA (occurrence: CA)
  Receive Date: 20220209
  Receipt Date: 20220627
  Transmission Date: 20220721
  Serious: Yes (Hospitalization, Other)
  Sender: FDA-Public Use
  Company Number: CA-UCBSA-2022005082

PATIENT
  Sex: Female

DRUGS (4)
  1. BRIVARACETAM [Suspect]
     Active Substance: BRIVARACETAM
     Indication: Partial seizures
     Dosage: 150 MILLIGRAM, 2X/DAY (BID)
     Route: 048
  2. BRIVARACETAM [Suspect]
     Active Substance: BRIVARACETAM
     Dosage: 200 MILLIGRAM, 2X/DAY (BID)
     Route: 048
     Dates: start: 2021
  3. BRIVARACETAM [Suspect]
     Active Substance: BRIVARACETAM
     Dosage: 400 MILLIGRAM, 2X/DAY (BID)
     Route: 048
     Dates: start: 20210517
  4. VIMPAT [Suspect]
     Active Substance: LACOSAMIDE
     Indication: Partial seizures
     Dosage: 150MG AM AND 250MG PM
     Route: 048

REACTIONS (9)
  - Rash [Unknown]
  - Fracture [Unknown]
  - Seizure [Unknown]
  - Breast pain [Unknown]
  - Back pain [Unknown]
  - Fall [Unknown]
  - Incorrect dose administered [Unknown]
  - Overdose [Unknown]
  - Product use issue [Unknown]

NARRATIVE: CASE EVENT DATE: 20210101
